FAERS Safety Report 23827528 (Version 1)
Quarter: 2024Q2

REPORT INFORMATION
  Report Type: Report from Study
  Country: GB (occurrence: GB)
  Receive Date: 20240507
  Receipt Date: 20240507
  Transmission Date: 20240717
  Serious: Yes (Other)
  Sender: FDA-Public Use
  Company Number: GB-SANDOZ-SDZ2024GB045790

PATIENT
  Age: 67 Year
  Sex: Female

DRUGS (1)
  1. ERELZI [Suspect]
     Active Substance: ETANERCEPT-SZZS
     Indication: Psoriasis
     Dosage: 50 MG, QW
     Route: 058

REACTIONS (2)
  - Surgery [Unknown]
  - Spinal disorder [Unknown]

NARRATIVE: CASE EVENT DATE: 20240328
